FAERS Safety Report 5201491-9 (Version None)
Quarter: 2007Q1

REPORT INFORMATION
  Report Type: 
  Country: None (occurrence: None)
  Receive Date: 20070104
  Receipt Date: 20061219
  Transmission Date: 20070707
  Serious: Yes (Other)
  Sender: FDA-Public Use
  Company Number: S06-FRA-05416-01

PATIENT
  Age: 20 Year
  Sex: Female

DRUGS (5)
  1. SEROPLEX (ESCITALOPRAM) [Suspect]
     Indication: DRUG USE FOR UNKNOWN INDICATION
     Dates: start: 20061001
  2. DEPAKOTE [Suspect]
     Indication: DRUG USE FOR UNKNOWN INDICATION
     Dates: start: 20061001
  3. ATHYMIL (MIANSERIN HYDROCHLORIDE) [Suspect]
     Indication: DRUG USE FOR UNKNOWN INDICATION
     Dates: start: 20061001
  4. IMOVANE (ZOPICLONE) [Suspect]
     Indication: DRUG USE FOR UNKNOWN INDICATION
     Dates: start: 20061001
  5. BETA-LACTAMIN (BETA-LACTAM ANTIBACTERIALS, PENICILLIN) [Concomitant]

REACTIONS (1)
  - GUTTATE PSORIASIS [None]
